FAERS Safety Report 21073847 (Version 1)
Quarter: 2022Q3

REPORT INFORMATION
  Report Type: Spontaneous
  Country: US (occurrence: US)
  Receive Date: 20220713
  Receipt Date: 20220713
  Transmission Date: 20221027
  Serious: No
  Sender: FDA-Public Use
  Company Number: US-drreddys-SPO/USA/22/0151904

PATIENT
  Age: 16 Year
  Sex: Female

DRUGS (2)
  1. ZENATANE [Suspect]
     Active Substance: ISOTRETINOIN
     Indication: Product used for unknown indication
     Dosage: RMA ISSUE DATE: 25 JANUARY 2022 09:09:13 AM, 25 FEBRUARY 2022 04:03:15 PM AND 29 MARCH 2022 09:04:15
  2. ZENATANE [Suspect]
     Active Substance: ISOTRETINOIN
     Dosage: RMA ISSUE DATE: 6 MAY 2022 08:44:16 AM AND 2 JUNE 2022 02:26:42 PM

REACTIONS (1)
  - Crying [Unknown]
